FAERS Safety Report 6508194-9 (Version None)
Quarter: 2009Q4

REPORT INFORMATION
  Report Type: 
  Country: None (occurrence: None)
  Receive Date: 20091221
  Receipt Date: 20090106
  Transmission Date: 20100525
  Serious: No
  Sender: FDA-Public Use
  Company Number: US-ASTRAZENECA-2008UW27279

PATIENT
  Age: 74 Year
  Sex: Female
  Weight: 71.7 kg

DRUGS (6)
  1. CRESTOR [Suspect]
     Indication: BLOOD CHOLESTEROL INCREASED
     Route: 048
  2. CRESTOR [Suspect]
     Route: 048
  3. SYNTHROID [Concomitant]
  4. TOPROL-XL [Concomitant]
     Route: 048
  5. VITAMONS [Concomitant]
  6. ASPIRIN [Concomitant]

REACTIONS (1)
  - MUSCLE SPASMS [None]
